FAERS Safety Report 4298582-6 (Version None)
Quarter: 2004Q1

REPORT INFORMATION
  Report Type: 
  Country: None (occurrence: None)
  Receive Date: 20040126
  Receipt Date: 20030910
  Transmission Date: 20041129
  Serious: No
  Sender: FDA-Public Use
  Company Number: USA030946844

PATIENT
  Age: 10 Year
  Sex: 0

DRUGS (1)
  1. STRATTERA [Suspect]

REACTIONS (1)
  - LOWER LIMB FRACTURE [None]
